FAERS Safety Report 9955156 (Version 1)
Quarter: 2014Q1

REPORT INFORMATION
  Report Type: Report from Study
  Country: US (occurrence: US)
  Receive Date: 20140304
  Receipt Date: 20140304
  Transmission Date: 20141002
  Serious: No
  Sender: FDA-Public Use
  Company Number: US-ABBVIE-13P-163-1074738-00

PATIENT
  Age: 19 Year
  Sex: Male

DRUGS (3)
  1. HUMIRA [Suspect]
     Indication: COLITIS ULCERATIVE
  2. ADDERALL [Concomitant]
     Indication: DISTURBANCE IN ATTENTION
     Dosage: 30 MG AS REQUIRED
  3. UNKNOWN MEDICATION [Concomitant]
     Indication: COLITIS
     Dosage: DON^T THINK HE TAKES - GIVES HIM HEADACHES

REACTIONS (2)
  - Drug ineffective [Unknown]
  - Headache [Unknown]
